FAERS Safety Report 8987068 (Version 1)
Quarter: 2012Q4

REPORT INFORMATION
  Report Type: Report from Study
  Country: US (occurrence: US)
  Receive Date: 20121226
  Receipt Date: 20121226
  Transmission Date: 20130627
  Serious: Yes (Hospitalization)
  Sender: FDA-Public Use
  Company Number: US-BAXTER-2012BAX028239

PATIENT
  Sex: Female

DRUGS (2)
  1. ARALAST NP [Suspect]
     Indication: DRUG USE FOR UNKNOWN INDICATION
     Route: 042
  2. BACTRIM [Concomitant]
     Indication: BRONCHITIS

REACTIONS (1)
  - Malaise [Unknown]
